FAERS Safety Report 14016776 (Version 5)
Quarter: 2017Q4

REPORT INFORMATION
  Report Type: Spontaneous
  Country: ES (occurrence: ES)
  Receive Date: 20170927
  Receipt Date: 20171023
  Transmission Date: 20180321
  Serious: Yes (Other)
  Sender: FDA-Public Use
  Company Number: ES-JNJFOC-20170921153

PATIENT
  Age: 37 Year
  Sex: Female
  Weight: 61 kg

DRUGS (8)
  1. INFLIXIMAB, RECOMBINANT [Suspect]
     Active Substance: INFLIXIMAB
     Indication: CHOLANGITIS SCLEROSING
     Route: 042
     Dates: start: 2012, end: 2012
  2. INFLIXIMAB, RECOMBINANT [Suspect]
     Active Substance: INFLIXIMAB
     Indication: COLITIS ULCERATIVE
     Route: 042
     Dates: end: 201102
  3. MESALAZINUM [Concomitant]
     Active Substance: MESALAMINE
     Route: 065
     Dates: end: 201201
  4. INFLIXIMAB, RECOMBINANT [Suspect]
     Active Substance: INFLIXIMAB
     Indication: CHOLANGITIS SCLEROSING
     Route: 042
     Dates: end: 201102
  5. INFLIXIMAB, RECOMBINANT [Suspect]
     Active Substance: INFLIXIMAB
     Indication: COLITIS ULCERATIVE
     Route: 042
     Dates: start: 2012, end: 201205
  6. ADVAGRAF [Suspect]
     Active Substance: TACROLIMUS
     Indication: LIVER TRANSPLANT
     Route: 048
     Dates: start: 201103
  7. INFLIXIMAB, RECOMBINANT [Suspect]
     Active Substance: INFLIXIMAB
     Indication: CHOLANGITIS SCLEROSING
     Route: 042
     Dates: start: 2012, end: 201205
  8. INFLIXIMAB, RECOMBINANT [Suspect]
     Active Substance: INFLIXIMAB
     Indication: COLITIS ULCERATIVE
     Route: 042
     Dates: start: 2012, end: 2012

REACTIONS (7)
  - Off label use [Unknown]
  - Cytomegalovirus infection [Recovered/Resolved]
  - Transplant rejection [Recovered/Resolved]
  - Infusion related reaction [Unknown]
  - Drug effect incomplete [Unknown]
  - Colitis ulcerative [Recovering/Resolving]
  - Product use issue [Unknown]

NARRATIVE: CASE EVENT DATE: 201103
